FAERS Safety Report 6802568-4 (Version None)
Quarter: 2010Q2

REPORT INFORMATION
  Report Type: 
  Country: None (occurrence: None)
  Receive Date: 20100629
  Receipt Date: 20090616
  Transmission Date: 20101027
  Serious: No
  Sender: FDA-Public Use
  Company Number: US-PFIZER INC-2004086060

PATIENT
  Age: 56 Year
  Sex: Male
  Weight: 95.3 kg

DRUGS (6)
  1. VIAGRA [Suspect]
     Indication: ERECTILE DYSFUNCTION
     Route: 048
     Dates: start: 20030101
  2. LIPITOR [Suspect]
     Dosage: 20 MG, UNK
  3. GLIPIZIDE [Concomitant]
     Route: 065
  4. ESOMEPRAZOLE [Concomitant]
     Route: 065
  5. ACETYLSALICYLIC ACID [Concomitant]
     Route: 065
  6. METFORMIN HCL [Concomitant]
     Route: 065

REACTIONS (5)
  - ERECTILE DYSFUNCTION [None]
  - GAIT DISTURBANCE [None]
  - MUSCLE SPASMS [None]
  - MUSCULOSKELETAL STIFFNESS [None]
  - MYALGIA [None]
